FAERS Safety Report 19762180 (Version 1)
Quarter: 2021Q3

REPORT INFORMATION
  Report Type: Spontaneous
  Country: US (occurrence: US)
  Receive Date: 20210829
  Receipt Date: 20210829
  Transmission Date: 20211014
  Serious: Yes (Disabling, Other)
  Sender: FDA-Public Use
  Company Number: None

PATIENT
  Age: 54 Year
  Sex: Female
  Weight: 52.2 kg

DRUGS (11)
  1. GLUCOSAMINE [Concomitant]
     Active Substance: GLUCOSAMINE
  2. PROLIA [Suspect]
     Active Substance: DENOSUMAB
     Indication: OSTEOPOROSIS
     Dosage: ?          QUANTITY:1 60 MG;OTHER FREQUENCY:2 X YEAR;?
     Route: 042
  3. CHONDROITIN [Concomitant]
     Active Substance: CHONDROITIN
  4. TUMERIC [Concomitant]
     Active Substance: HERBALS\TURMERIC
  5. VITAMIN D [Concomitant]
     Active Substance: VITAMIN D NOS
  6. VITAMIN C [Concomitant]
     Active Substance: ASCORBIC ACID
  7. ALPHA LIPOIC ACID [Concomitant]
     Active Substance: .ALPHA.-LIPOIC ACID
  8. PROBIOTICS [Concomitant]
     Active Substance: PROBIOTICS NOS
  9. LYSINE [Concomitant]
     Active Substance: LYSINE
  10. FIBER [Concomitant]
     Active Substance: PSYLLIUM HUSK
  11. MAGNESIUM [Concomitant]
     Active Substance: MAGNESIUM

REACTIONS (6)
  - Paraesthesia [None]
  - Blood calcium abnormal [None]
  - Neuropathy peripheral [None]
  - Musculoskeletal chest pain [None]
  - Vitamin B6 increased [None]
  - Pain in jaw [None]

NARRATIVE: CASE EVENT DATE: 20200430
